FAERS Safety Report 4784335-9 (Version None)
Quarter: 2005Q3

REPORT INFORMATION
  Report Type: 
  Country: None (occurrence: None)
  Receive Date: 20050930
  Receipt Date: 20050922
  Transmission Date: 20060218
  Serious: Yes (Hospitalization, Other)
  Sender: FDA-Public Use
  Company Number: PHBS2005JP14133

PATIENT
  Age: 56 Year
  Sex: Male

DRUGS (2)
  1. ZADITEN [Suspect]
     Indication: URTICARIA
     Dosage: 2 MG/DAY
     Route: 048
     Dates: start: 20050907, end: 20050921
  2. OXAROL [Concomitant]
     Route: 061
     Dates: start: 20050907, end: 20050921

REACTIONS (7)
  - ALANINE AMINOTRANSFERASE INCREASED [None]
  - ASPARTATE AMINOTRANSFERASE INCREASED [None]
  - BLOOD ALKALINE PHOSPHATASE INCREASED [None]
  - BLOOD BILIRUBIN INCREASED [None]
  - BLOOD LACTATE DEHYDROGENASE INCREASED [None]
  - GAMMA-GLUTAMYLTRANSFERASE INCREASED [None]
  - LIVER DISORDER [None]
